FAERS Safety Report 6358082-6 (Version None)
Quarter: 2009Q3

REPORT INFORMATION
  Report Type: 
  Country: None (occurrence: None)
  Receive Date: 20090916
  Receipt Date: 20090911
  Transmission Date: 20100115
  Serious: Yes (Other)
  Sender: FDA-Public Use
  Company Number: B0593059A

PATIENT
  Sex: Male

DRUGS (4)
  1. RELENZA [Suspect]
     Indication: INFLUENZA
     Dosage: 10MG PER DAY
     Route: 055
     Dates: start: 20090908, end: 20090908
  2. CALONAL [Suspect]
     Indication: ANALGESIC THERAPY
     Dosage: 180MG TWICE PER DAY
     Route: 048
     Dates: start: 20090908
  3. MUCOSOLVAN [Concomitant]
     Indication: PRODUCTIVE COUGH
     Dosage: 21ML PER DAY
     Route: 048
     Dates: start: 20090908
  4. ASVERIN [Concomitant]
     Indication: ANTITUSSIVE THERAPY
     Dosage: 21ML PER DAY
     Route: 048
     Dates: start: 20090908

REACTIONS (3)
  - DIARRHOEA [None]
  - ERYTHEMA MULTIFORME [None]
  - URTICARIA [None]
